FAERS Safety Report 5361099-1 (Version None)
Quarter: 2007Q2

REPORT INFORMATION
  Report Type: 
  Country: None (occurrence: None)
  Receive Date: 20070614
  Receipt Date: 20070605
  Transmission Date: 20071010
  Serious: Yes (Hospitalization)
  Sender: FDA-Public Use
  Company Number: 163-C5013-06030548

PATIENT
  Age: 78 Year
  Sex: Female
  Weight: 67.7 kg

DRUGS (11)
  1. CC-5013 (LENALIDOMIDE) (CAPSULES) [Suspect]
     Indication: MULTIPLE MYELOMA
     Dosage: SEE IMAGE
     Route: 048
     Dates: start: 20060215, end: 20060304
  2. CC-5013 (LENALIDOMIDE) (CAPSULES) [Suspect]
     Indication: MULTIPLE MYELOMA
     Dosage: SEE IMAGE
     Route: 048
     Dates: start: 20060301, end: 20060304
  3. CC-5013 (LENALIDOMIDE) (CAPSULES) [Suspect]
     Indication: MULTIPLE MYELOMA
     Dosage: SEE IMAGE
     Route: 048
     Dates: start: 20060329
  4. DEXAMETHASONE TAB [Suspect]
     Indication: MULTIPLE MYELOMA
     Dosage: 40 MG, QD ON DAYS 1, 8, 15 + 22 EVERY 28 DAYS, ORAL
     Route: 048
     Dates: start: 20060215, end: 20060301
  5. ASPIRIN [Suspect]
     Indication: THROMBOSIS PROPHYLAXIS
     Dosage: 325 MG, QD ON DAYS 1-28 OF EACH CYCLE, ORAL
     Route: 048
  6. COMPAZINE [Concomitant]
  7. ZOMETA [Concomitant]
  8. LOVENOX [Concomitant]
  9. COUMADIN [Concomitant]
  10. NEXIUM [Concomitant]
  11. ZOMETA [Concomitant]

REACTIONS (5)
  - BRONCHOSPASM [None]
  - CHRONIC OBSTRUCTIVE PULMONARY DISEASE [None]
  - CONDITION AGGRAVATED [None]
  - OESOPHAGITIS ULCERATIVE [None]
  - RASH [None]
